FAERS Safety Report 7597475-6 (Version None)
Quarter: 2011Q3

REPORT INFORMATION
  Report Type: 
  Country: None (occurrence: None)
  Receive Date: 20110708
  Receipt Date: 20110629
  Transmission Date: 20111222
  Serious: Yes (Other)
  Sender: FDA-Public Use
  Company Number: PHHY2011DE58020

PATIENT
  Age: 58 Year
  Sex: Female

DRUGS (3)
  1. CORTISONE ACETATE [Concomitant]
  2. CHEMOTHERAPEUTICS NOS [Concomitant]
  3. ZOMETA [Suspect]
     Route: 042
     Dates: start: 20030701, end: 20090601

REACTIONS (2)
  - SWELLING [None]
  - OSTEOMYELITIS [None]
